FAERS Safety Report 12599717 (Version 1)
Quarter: 2016Q3

REPORT INFORMATION
  Report Type: Spontaneous
  Country: US (occurrence: US)
  Receive Date: 20160727
  Receipt Date: 20160727
  Transmission Date: 20161109
  Serious: No
  Sender: FDA-Public Use
  Company Number: US-SA-2016SA081671

PATIENT
  Age: 51 Year
  Sex: Female

DRUGS (2)
  1. AMBIEN [Suspect]
     Active Substance: ZOLPIDEM TARTRATE
     Route: 048
  2. JAKAFI [Suspect]
     Active Substance: RUXOLITINIB
     Route: 065

REACTIONS (11)
  - Insomnia [Unknown]
  - Migraine [Unknown]
  - Headache [Unknown]
  - Dizziness [Unknown]
  - Tinnitus [Unknown]
  - Chest pain [Unknown]
  - Eye pain [Unknown]
  - Contusion [Unknown]
  - Somnolence [Unknown]
  - Feeling abnormal [Unknown]
  - Anxiety [Unknown]
